FAERS Safety Report 19576983 (Version 4)
Quarter: 2022Q4

REPORT INFORMATION
  Report Type: Spontaneous
  Country: US (occurrence: US)
  Receive Date: 20210719
  Receipt Date: 20221116
  Transmission Date: 20230113
  Serious: Yes (Hospitalization, Other)
  Sender: FDA-Public Use
  Company Number: US-PFIZER INC-2021848629

PATIENT
  Age: 36 Year
  Sex: Female

DRUGS (2)
  1. XELJANZ [Suspect]
     Active Substance: TOFACITINIB CITRATE
     Dosage: 5 MG, 2X/DAY
     Route: 048
  2. XELJANZ [Suspect]
     Active Substance: TOFACITINIB CITRATE
     Dosage: 5MG TWICE DAILY BY MOUTH
     Route: 048
     Dates: start: 2021

REACTIONS (4)
  - Sepsis [Unknown]
  - Urinary tract infection [Recovering/Resolving]
  - Nephrolithiasis [Recovered/Resolved]
  - Stent removal [Recovered/Resolved]

NARRATIVE: CASE EVENT DATE: 20210704
